FAERS Safety Report 16591708 (Version 1)
Quarter: 2019Q3

REPORT INFORMATION
  Report Type: Report from Study
  Country: GR (occurrence: GR)
  Receive Date: 20190718
  Receipt Date: 20190718
  Transmission Date: 20191004
  Serious: Yes (Death, Hospitalization)
  Sender: FDA-Public Use
  Company Number: GR-ACTELION-A-CH2019-186319

PATIENT
  Age: 44 Year
  Sex: Female
  Weight: 51 kg

DRUGS (10)
  1. UPTRAVI [Suspect]
     Active Substance: SELEXIPAG
     Indication: PULMONARY ARTERIAL HYPERTENSION
     Dosage: 400 MCG, QD
     Route: 048
     Dates: start: 20181029, end: 20181206
  2. SINTROM [Concomitant]
     Active Substance: ACENOCOUMAROL
     Indication: PALPITATIONS
     Dosage: UNK
     Route: 048
     Dates: start: 20051104
  3. SOTALOL. [Concomitant]
     Active Substance: SOTALOL
     Indication: PALPITATIONS
     Dosage: UNK
     Route: 048
     Dates: start: 20151103
  4. AROMASIN [Concomitant]
     Active Substance: EXEMESTANE
     Indication: BREAST CANCER
     Dosage: UNK
     Route: 048
     Dates: start: 20180103
  5. AMBRISENTAN [Concomitant]
     Active Substance: AMBRISENTAN
     Indication: PULMONARY ARTERIAL HYPERTENSION
     Dosage: 10 MG, QD
     Route: 048
     Dates: start: 20161102
  6. FRUMIL [Concomitant]
     Active Substance: AMILORIDE HYDROCHLORIDE\FUROSEMIDE
     Indication: OEDEMA
     Dosage: UNK
     Dates: start: 20180904
  7. TADALAFIL. [Concomitant]
     Active Substance: TADALAFIL
     Indication: PULMONARY ARTERIAL HYPERTENSION
     Dosage: 20 MG, QD
     Route: 048
     Dates: start: 20180502
  8. FUROSEMIDE. [Concomitant]
     Active Substance: FUROSEMIDE
     Indication: OEDEMA
     Dosage: UNK
     Route: 048
     Dates: start: 20051102
  9. FILICINE [Concomitant]
     Indication: ANAEMIA
     Dosage: UNK
     Route: 048
     Dates: start: 20171108
  10. LEGOFER [Concomitant]
     Active Substance: FERROUS SUCCINATE
     Indication: ANAEMIA
     Dosage: UNK
     Route: 048
     Dates: start: 20171102

REACTIONS (4)
  - Hypotension [Recovering/Resolving]
  - Pulmonary arterial hypertension [Fatal]
  - Disease progression [Fatal]
  - Oedema [Recovering/Resolving]

NARRATIVE: CASE EVENT DATE: 20181206
